FAERS Safety Report 4289882-4 (Version None)
Quarter: 2004Q1

REPORT INFORMATION
  Report Type: 
  Country: None (occurrence: None)
  Receive Date: 20040205
  Receipt Date: 20040120
  Transmission Date: 20041129
  Serious: No
  Sender: FDA-Public Use
  Company Number: 04H-122-0248799-00

PATIENT
  Age: 39 Year
  Sex: Male

DRUGS (3)
  1. PENTOTHAL [Suspect]
     Indication: INDUCTION OF ANAESTHESIA
     Dosage: 350 MG, AT 18:45, INTRAVENOUS
     Route: 042
     Dates: start: 20040104, end: 20040104
  2. SUXAMETHONIUM CHLORIDE [Suspect]
     Indication: INDUCTION OF ANAESTHESIA
     Dosage: 100 MG, AT 18:45, INTRAVENOUS
     Route: 042
     Dates: start: 20040104, end: 20040104
  3. FENTANYL [Concomitant]

REACTIONS (1)
  - ANAPHYLACTIC REACTION [None]
